FAERS Safety Report 6191733-8 (Version None)
Quarter: 2009Q2

REPORT INFORMATION
  Report Type: 
  Country: None (occurrence: None)
  Receive Date: 20090515
  Receipt Date: 20090513
  Transmission Date: 20091009
  Serious: Yes (Hospitalization, Other)
  Sender: FDA-Public Use
  Company Number: FR-BAYER-200920649GPV

PATIENT
  Age: 50 Year
  Sex: Male

DRUGS (3)
  1. ASPIRIN [Suspect]
     Indication: HEADACHE
     Route: 048
  2. BUPRENORPHINE HCL [Suspect]
     Indication: DRUG DEPENDENCE
     Dates: start: 20070902
  3. CLONAZEPAM [Concomitant]
     Indication: BACK PAIN

REACTIONS (4)
  - ASTHENIA [None]
  - HEPATITIS [None]
  - NAUSEA [None]
  - VOMITING [None]
